FAERS Safety Report 6107538-X (Version None)
Quarter: 2009Q1

REPORT INFORMATION
  Report Type: 
  Country: None (occurrence: None)
  Receive Date: 20090309
  Receipt Date: 20090226
  Transmission Date: 20090719
  Serious: Yes (Hospitalization)
  Sender: FDA-Public Use
  Company Number: PHEH2009US02136

PATIENT
  Sex: Female

DRUGS (1)
  1. RECLAST [Suspect]
     Indication: OSTEOPOROSIS POSTMENOPAUSAL
     Dosage: 5 MG, ONCE/SINGLE

REACTIONS (4)
  - HYPOTENSION [None]
  - MENTAL STATUS CHANGES [None]
  - PLATELET TRANSFUSION [None]
  - THROMBOCYTOPENIA [None]
